FAERS Safety Report 9858665 (Version 1)
Quarter: 2014Q1

REPORT INFORMATION
  Report Type: Spontaneous
  Country: US (occurrence: US)
  Receive Date: 20140131
  Receipt Date: 20140131
  Transmission Date: 20141002
  Serious: No
  Sender: FDA-Public Use
  Company Number: US-BAYER-2014-016247

PATIENT
  Age: 77 Year
  Sex: Female
  Weight: 75.28 kg

DRUGS (8)
  1. ALEVE TABLET [Suspect]
     Indication: ARTHRITIS
     Route: 048
  2. LOSARTAN POTASSIUM W/HYDROCHLOROTHIAZIDE [Concomitant]
  3. CARVEDILOL [Concomitant]
  4. PRAVASTATIN [Concomitant]
  5. BAYER ASPIRIN REGIMEN ADULT LOW STRENGTH [Concomitant]
     Dosage: UNK UNK, QD
  6. VESICARE [Concomitant]
  7. FOSAMAX [Concomitant]
     Dosage: UNK UNK, OW
  8. AMLODIPINE [Concomitant]

REACTIONS (6)
  - Epigastric discomfort [Recovered/Resolved]
  - Abdominal discomfort [Recovered/Resolved]
  - Off label use [None]
  - Extra dose administered [None]
  - Drug administration error [None]
  - Incorrect drug administration duration [None]
